FAERS Safety Report 5522186-8 (Version None)
Quarter: 2007Q4

REPORT INFORMATION
  Report Type: 
  Country: None (occurrence: None)
  Receive Date: 20071120
  Receipt Date: 20071114
  Transmission Date: 20080405
  Serious: Yes (Other)
  Sender: FDA-Public Use
  Company Number: A0695053A

PATIENT
  Age: 44 Year
  Sex: Female
  Weight: 65 kg

DRUGS (3)
  1. AEROTIDE [Suspect]
     Indication: ASTHMA
     Route: 045
     Dates: start: 19920101, end: 20030101
  2. AEROLIN [Suspect]
     Indication: DRUG USE FOR UNKNOWN INDICATION
     Route: 055
     Dates: start: 20040101
  3. SERETIDE [Concomitant]
     Route: 055
     Dates: start: 20060101

REACTIONS (5)
  - DRUG INEFFECTIVE [None]
  - DYSPHONIA [None]
  - HEADACHE [None]
  - LOSS OF CONSCIOUSNESS [None]
  - OVERDOSE [None]
